FAERS Safety Report 14593497 (Version 1)
Quarter: 2018Q1

REPORT INFORMATION
  Report Type: Report from Study
  Country: US (occurrence: US)
  Receive Date: 20180302
  Receipt Date: 20180302
  Transmission Date: 20180509
  Serious: Yes (Hospitalization)
  Sender: FDA-Public Use
  Company Number: US-JNJFOC-20180301323

PATIENT
  Sex: Male

DRUGS (16)
  1. IMBRUVICA [Suspect]
     Active Substance: IBRUTINIB
     Indication: CHRONIC LYMPHOCYTIC LEUKAEMIA
     Route: 048
     Dates: start: 20171013
  2. EFUDEX [Concomitant]
     Active Substance: FLUOROURACIL
  3. SIMVASTATIN. [Concomitant]
     Active Substance: SIMVASTATIN
  4. PAXIL [Concomitant]
     Active Substance: PAROXETINE HYDROCHLORIDE
  5. SYNTHROID [Concomitant]
     Active Substance: LEVOTHYROXINE SODIUM
  6. FISH OIL [Concomitant]
     Active Substance: FISH OIL
  7. PRILOSEC [Concomitant]
     Active Substance: OMEPRAZOLE MAGNESIUM
  8. NORVASC [Concomitant]
     Active Substance: AMLODIPINE BESYLATE
  9. NITROSTAT [Concomitant]
     Active Substance: NITROGLYCERIN
  10. ASPIRIN. [Concomitant]
     Active Substance: ASPIRIN
  11. PLAVIX [Concomitant]
     Active Substance: CLOPIDOGREL BISULFATE
  12. LOSARTAN. [Concomitant]
     Active Substance: LOSARTAN
  13. TOPROL XL [Concomitant]
     Active Substance: METOPROLOL SUCCINATE
  14. COQ10 [Concomitant]
     Active Substance: UBIDECARENONE
  15. VITAMIN B [Concomitant]
     Active Substance: VITAMIN B
  16. AMIODARONE [Concomitant]
     Active Substance: AMIODARONE

REACTIONS (2)
  - Adverse event [Unknown]
  - Atrial fibrillation [Not Recovered/Not Resolved]
